FAERS Safety Report 4983879-4 (Version None)
Quarter: 2006Q2

REPORT INFORMATION
  Report Type: 
  Country: None (occurrence: None)
  Receive Date: 20060426
  Receipt Date: 20050128
  Transmission Date: 20061013
  Serious: Yes (Hospitalization, Disabling)
  Sender: FDA-Public Use
  Company Number: NO-MERCK-0502NOR00001

PATIENT
  Age: 55 Year
  Sex: Female

DRUGS (6)
  1. VIOXX [Suspect]
     Indication: PROCEDURAL PAIN
     Route: 048
     Dates: start: 20030428, end: 20030515
  2. IRBESARTAN [Concomitant]
     Indication: HYPERTENSION
     Route: 048
     Dates: start: 20030221
  3. CARVEDILOL [Concomitant]
     Indication: HYPERTENSION
     Route: 048
     Dates: start: 20030127
  4. PRAVASTATIN SODIUM [Concomitant]
     Indication: BLOOD CHOLESTEROL INCREASED
     Route: 048
  5. ASPIRIN AND MAGNESIUM OXIDE [Concomitant]
     Indication: HYPERTENSION
     Route: 048
  6. ACETAMINOPHEN AND CODEINE PHOSPHATE [Concomitant]
     Indication: PROCEDURAL PAIN
     Route: 065
     Dates: start: 20030428

REACTIONS (2)
  - CAROTID ARTERY STENOSIS [None]
  - CEREBRAL HAEMORRHAGE [None]
